FAERS Safety Report 8330722 (Version 2)
Quarter: 2013Q3

REPORT INFORMATION
  Report Type: Spontaneous
  Country: CA (occurrence: CA)
  Receive Date: 20120111
  Receipt Date: 20130905
  Transmission Date: 20140515
  Serious: Yes (Disabling)
  Sender: FDA-Public Use
  Company Number: CA-ROCHE-1028178

PATIENT
  Sex: Female

DRUGS (5)
  1. XELODA [Suspect]
     Indication: RECTAL CANCER
     Route: 048
     Dates: start: 20090811
  2. XELODA [Suspect]
     Route: 048
     Dates: start: 20090811
  3. ELOXATIN [Suspect]
     Indication: RECTAL CANCER
     Route: 054
     Dates: start: 200908, end: 20100210
  4. 5-FLUOROURACIL [Suspect]
     Indication: RECTAL CANCER
     Route: 065
  5. GABAPENTIN [Suspect]
     Indication: PAIN IN EXTREMITY
     Route: 065

REACTIONS (9)
  - Pain in extremity [Unknown]
  - Amnesia [Not Recovered/Not Resolved]
  - Renal impairment [Unknown]
  - Epistaxis [Recovered/Resolved]
  - Fatigue [Unknown]
  - Confusional state [Unknown]
  - Drug hypersensitivity [Unknown]
  - Disorientation [Unknown]
  - Somnolence [Unknown]
